FAERS Safety Report 10785398 (Version 1)
Quarter: 2015Q1

REPORT INFORMATION
  Report Type: Spontaneous
  Country: GB (occurrence: GB)
  Receive Date: 20150211
  Receipt Date: 20150211
  Transmission Date: 20150721
  Serious: Yes (Hospitalization, Other)
  Sender: FDA-Public Use
  Company Number: GB-AUROBINDO-AUR-APL-2015-01001

PATIENT
  Sex: Female

DRUGS (7)
  1. RIFABUTIN. [Suspect]
     Active Substance: RIFABUTIN
     Indication: CROHN^S DISEASE
     Dosage: UNK
     Route: 065
     Dates: start: 201406, end: 201407
  2. CLARITHROMYCIN. [Suspect]
     Active Substance: CLARITHROMYCIN
     Indication: CROHN^S DISEASE
     Dosage: UNK
     Route: 065
     Dates: start: 201406, end: 201407
  3. PREDNISOLONE. [Concomitant]
     Active Substance: PREDNISOLONE
     Indication: PRODUCT USED FOR UNKNOWN INDICATION
     Dosage: 20 MG, UNK
     Route: 065
  4. VENLAFAXINE [Suspect]
     Active Substance: VENLAFAXINE HYDROCHLORIDE
     Dosage: 225 MG, DAILY, 2X75MG IN THE MORNING, 1X75MG EVERY EVENING
     Route: 065
     Dates: start: 201501
  5. VENLAFAXINE [Suspect]
     Active Substance: VENLAFAXINE HYDROCHLORIDE
     Dosage: 75 MG, UNK
     Route: 065
     Dates: start: 201501, end: 201501
  6. VENLAFAXINE [Suspect]
     Active Substance: VENLAFAXINE HYDROCHLORIDE
     Indication: DEPRESSION
     Dosage: 150 MG, UNK
     Route: 065
     Dates: end: 201501
  7. ZOPICLONE [Concomitant]
     Active Substance: ZOPICLONE
     Indication: SLEEP DISORDER
     Dosage: 3.75 MG, ONCE A DAY
     Route: 065

REACTIONS (12)
  - Ocular icterus [Unknown]
  - Vomiting [Unknown]
  - Malaise [Unknown]
  - Anxiety [Unknown]
  - Dyspnoea [Unknown]
  - Joint destruction [Unknown]
  - Panic reaction [Unknown]
  - Depressed mood [Unknown]
  - Ileostomy [Unknown]
  - Malaise [Unknown]
  - Drug-induced liver injury [Unknown]
  - Drug effect decreased [Unknown]

NARRATIVE: CASE EVENT DATE: 201406
